FAERS Safety Report 17203767 (Version 2)
Quarter: 2020Q1

REPORT INFORMATION
  Report Type: Spontaneous
  Country: FR (occurrence: FR)
  Receive Date: 20191226
  Receipt Date: 20200102
  Transmission Date: 20200409
  Serious: Yes (Hospitalization)
  Sender: FDA-Public Use
  Company Number: FR-MYLANLABS-2019M1127233

PATIENT
  Age: 14 Year
  Sex: Male
  Weight: 94 kg

DRUGS (9)
  1. IBUPROFEN. [Suspect]
     Active Substance: IBUPROFEN
     Indication: PRODUCT USED FOR UNKNOWN INDICATION
     Dosage: 4400 MILLIGRAM, TOTAL (4400 MG, (IN TOTAL))
     Route: 048
     Dates: start: 20190210, end: 20190210
  2. DICLOFENAC [Suspect]
     Active Substance: DICLOFENAC
     Indication: PRODUCT USED FOR UNKNOWN INDICATION
     Dosage: 5000 MILLIGRAM, TOTAL (5000 MG, (IN TOTAL))
     Route: 048
     Dates: start: 20190210, end: 20190210
  3. DIANE (CYPROTERONE ACETATE\ETHINYL ESTRADIOL) [Suspect]
     Active Substance: CYPROTERONE ACETATE\ETHINYL ESTRADIOL
     Indication: PRODUCT USED FOR UNKNOWN INDICATION
     Dosage: 21 DOSAGE FORM, TOTAL (21 DF,(IN TOTAL))
     Route: 048
     Dates: start: 20190210, end: 20190210
  4. DIAZEPAM. [Suspect]
     Active Substance: DIAZEPAM
     Indication: PRODUCT USED FOR UNKNOWN INDICATION
     Dosage: 480 MILLIGRAM, TOTAL (480 MG, (IN TOTAL))
     Route: 048
     Dates: start: 20190210, end: 20190210
  5. DONORMYL                           /00886901/ [Suspect]
     Active Substance: DOXYLAMINE\SODIUM BROMIDE\SODIUM PHOSPHATE, DIBASIC, ANHYDROUS\SODIUM SULFATE
     Indication: PRODUCT USED FOR UNKNOWN INDICATION
     Dosage: 300 MILLIGRAM, TOTAL (300 MG, UNK (IN TOTAL))
     Route: 048
     Dates: start: 20190210, end: 20190210
  6. COLCHICINE. [Suspect]
     Active Substance: COLCHICINE
     Indication: PRODUCT USED FOR UNKNOWN INDICATION
     Dosage: 6 MILLIGRAM, TOTAL (6 MG, (IN TOTAL))
     Route: 048
     Dates: start: 20190210, end: 20190210
  7. ESCITALOPRAM [Suspect]
     Active Substance: ESCITALOPRAM OXALATE
     Indication: PRODUCT USED FOR UNKNOWN INDICATION
     Dosage: 820 MILLIGRAM, TOTAL (820 MG,(IN TOTAL))
     Route: 048
     Dates: start: 20190210, end: 20190210
  8. CIALIS [Suspect]
     Active Substance: TADALAFIL
     Indication: PRODUCT USED FOR UNKNOWN INDICATION
     Dosage: 40 MILLIGRAM, TOTAL (40 MG, (IN TOTAL))
     Route: 048
     Dates: start: 20190210, end: 20190210
  9. PARACETAMOL [Suspect]
     Active Substance: ACETAMINOPHEN
     Indication: PRODUCT USED FOR UNKNOWN INDICATION
     Dosage: 2 GRAM, TOTAL (2 G, UNK (IN TOTAL)
     Route: 048
     Dates: start: 20190210, end: 20190210

REACTIONS (4)
  - Hypotension [Recovered/Resolved]
  - Intentional overdose [Unknown]
  - Malaise [Recovered/Resolved]
  - Diarrhoea [Recovered/Resolved]

NARRATIVE: CASE EVENT DATE: 20190210
